FAERS Safety Report 19913261 (Version 2)
Quarter: 2021Q4

REPORT INFORMATION
  Report Type: Spontaneous
  Country: US (occurrence: None)
  Receive Date: 20211004
  Receipt Date: 20211108
  Transmission Date: 20220303
  Serious: Yes (Life-Threatening, Hospitalization)
  Sender: FDA-Public Use
  Company Number: 2021A753180

PATIENT
  Age: 74 Year
  Sex: Male
  Weight: 95.3 kg

DRUGS (1)
  1. IMFINZI [Suspect]
     Active Substance: DURVALUMAB
     Indication: Non-small cell lung cancer
     Route: 041
     Dates: start: 20210503, end: 20210706

REACTIONS (4)
  - Hypoxia [Recovering/Resolving]
  - Bronchitis [Recovering/Resolving]
  - Respiratory failure [Recovering/Resolving]
  - Pneumonitis [Unknown]

NARRATIVE: CASE EVENT DATE: 20210801
